FAERS Safety Report 17307625 (Version 1)
Quarter: 2020Q1

REPORT INFORMATION
  Report Type: Spontaneous
  Country: US (occurrence: US)
  Receive Date: 20200122
  Receipt Date: 20200122
  Transmission Date: 20200409
  Serious: No
  Sender: FDA-Public Use
  Company Number: None

PATIENT
  Sex: Female
  Weight: 72.57 kg

DRUGS (3)
  1. SPRYCEL [Suspect]
     Active Substance: DASATINIB
     Indication: CHRONIC LYMPHOCYTIC LEUKAEMIA
     Dosage: ?          OTHER FREQUENCY:EVEN DAY;?
     Route: 048
     Dates: start: 20140530
  2. IBUPROFEN 200MG [Concomitant]
     Active Substance: IBUPROFEN
  3. VALIUM 5MG [Concomitant]

REACTIONS (1)
  - Influenza [None]
